FAERS Safety Report 13787045 (Version 1)
Quarter: 2017Q3

REPORT INFORMATION
  Report Type: Spontaneous
  Country: US (occurrence: US)
  Receive Date: 20170725
  Receipt Date: 20170725
  Transmission Date: 20171127
  Serious: Yes (Hospitalization)
  Sender: FDA-Public Use
  Company Number: None

PATIENT
  Age: 62 Year
  Sex: Female

DRUGS (12)
  1. HYDROCHLOROT [Concomitant]
     Active Substance: HYDROCHLOROTHIAZIDE
  2. CALCIUM [Concomitant]
     Active Substance: CALCIUM
  3. ZYRTEC [Concomitant]
     Active Substance: CETIRIZINE HYDROCHLORIDE
  4. VITAMIN D [Concomitant]
     Active Substance: CHOLECALCIFEROL
  5. FLUTICASONE. [Concomitant]
     Active Substance: FLUTICASONE
  6. FOSAMAX [Concomitant]
     Active Substance: ALENDRONATE SODIUM
  7. OXYCODONE [Concomitant]
     Active Substance: OXYCODONE
  8. XGEVA [Concomitant]
     Active Substance: DENOSUMAB
  9. IBRANCE [Suspect]
     Active Substance: PALBOCICLIB
     Indication: BREAST CANCER
     Route: 048
     Dates: start: 20160614
  10. TRAMADOL. [Concomitant]
     Active Substance: TRAMADOL
  11. DOXYCYCLINE. [Concomitant]
     Active Substance: DOXYCYCLINE
  12. CYMBALTA [Concomitant]
     Active Substance: DULOXETINE HYDROCHLORIDE

REACTIONS (1)
  - Infection [None]

NARRATIVE: CASE EVENT DATE: 20170630
